FAERS Safety Report 12212293 (Version 1)
Quarter: 2016Q1

REPORT INFORMATION
  Report Type: Report from Study
  Country: US (occurrence: US)
  Receive Date: 20160325
  Receipt Date: 20160325
  Transmission Date: 20160526
  Serious: Yes (Hospitalization)
  Sender: FDA-Public Use
  Company Number: PHHO2012US016378

PATIENT
  Age: 69 Year
  Sex: Male
  Weight: 112.47 kg

DRUGS (7)
  1. PLAVIX [Suspect]
     Active Substance: CLOPIDOGREL BISULFATE
     Indication: CORONARY ARTERY DISEASE
     Dosage: 75 MG, QD
     Route: 065
     Dates: end: 20121114
  2. ASPIRIN. [Suspect]
     Active Substance: ASPIRIN
     Dosage: 81 MG, UNK
     Route: 065
     Dates: end: 20160309
  3. PLAVIX [Suspect]
     Active Substance: CLOPIDOGREL BISULFATE
     Dosage: 75 MG, QD
     Route: 065
     Dates: start: 20121119, end: 20160310
  4. ACZ885 [Suspect]
     Active Substance: CANAKINUMAB
     Indication: CARDIOVASCULAR EVENT PROPHYLAXIS
     Dosage: 50 MG, UNK
     Route: 058
     Dates: start: 20120619
  5. ALEVE [Suspect]
     Active Substance: NAPROXEN SODIUM
     Indication: PRODUCT USED FOR UNKNOWN INDICATION
     Dosage: 2 TABS
     Route: 048
  6. ASPIRIN. [Suspect]
     Active Substance: ASPIRIN
     Indication: CORONARY ARTERY DISEASE
     Dosage: 325 MG, QD
     Route: 065
     Dates: end: 20121114
  7. ASPIRIN. [Suspect]
     Active Substance: ASPIRIN
     Dosage: 81 MG, QD
     Route: 065
     Dates: start: 20121115, end: 20121118

REACTIONS (2)
  - Gastrointestinal haemorrhage [Recovered/Resolved]
  - Upper gastrointestinal haemorrhage [Recovering/Resolving]

NARRATIVE: CASE EVENT DATE: 20121114
